FAERS Safety Report 6096792-9 (Version None)
Quarter: 2009Q1

REPORT INFORMATION
  Report Type: 
  Country: None (occurrence: None)
  Receive Date: 20090227
  Receipt Date: 20090218
  Transmission Date: 20090719
  Serious: Yes (Hospitalization)
  Sender: FDA-Public Use
  Company Number: SG-PFIZER INC-2006001578

PATIENT

DRUGS (10)
  1. SUNITINIB MALATE [Suspect]
     Indication: GASTROINTESTINAL STROMAL TUMOUR
     Route: 048
     Dates: start: 20051125, end: 20051230
  2. CELEBREX [Concomitant]
     Route: 048
     Dates: start: 20040826
  3. OMEPRAZOLE [Concomitant]
     Route: 048
     Dates: start: 20050203
  4. RAMIPRIL [Concomitant]
     Route: 048
     Dates: start: 20050301
  5. SANGOBION [Concomitant]
     Route: 048
     Dates: start: 20050720
  6. ATENOLOL [Concomitant]
     Route: 048
     Dates: start: 20050412
  7. DOMPERIDONE [Concomitant]
     Route: 048
  8. FRUSEMIDE [Concomitant]
     Route: 048
     Dates: start: 20051102
  9. AZUNOL [Concomitant]
     Route: 061
     Dates: start: 20051117
  10. GENTAMYCIN SULFATE [Concomitant]
     Route: 061
     Dates: start: 20051117

REACTIONS (7)
  - DIARRHOEA [None]
  - HAEMATOCRIT DECREASED [None]
  - HAEMOGLOBIN DECREASED [None]
  - PLATELET COUNT DECREASED [None]
  - PNEUMONIA [None]
  - RED BLOOD CELL COUNT DECREASED [None]
  - RED CELL DISTRIBUTION WIDTH INCREASED [None]
